FAERS Safety Report 9576151 (Version 2)
Quarter: 2013Q4

REPORT INFORMATION
  Report Type: Spontaneous
  Country: US (occurrence: US)
  Receive Date: 20131001
  Receipt Date: 20131001
  Transmission Date: 20140711
  Serious: No
  Sender: FDA-Public Use
  Company Number: US-AMGEN-USASP2012084086

PATIENT
  Age: 63 Year
  Sex: Female
  Weight: 109.75 kg

DRUGS (13)
  1. ENBREL [Suspect]
     Indication: PSORIATIC ARTHROPATHY
     Dosage: 50 MG, WEEKLY
     Route: 058
     Dates: start: 20121212
  2. AMITRIPTYLIN [Concomitant]
     Indication: INSOMNIA
     Dosage: 50 MG, QHS
     Route: 048
  3. ATENOLOL [Concomitant]
     Indication: HYPERTENSION
     Dosage: 25 MG, UNK
  4. ATENOLOL [Concomitant]
     Dosage: 50 MG, QD
     Route: 048
  5. PAXIL [Concomitant]
     Indication: DEPRESSION
     Dosage: 10 MG, UNK
  6. PAXIL [Concomitant]
     Dosage: 25 MG, QD
     Route: 048
  7. LISINOPRIL [Concomitant]
     Dosage: 5 MG, UNK
  8. BLACK COHOSH                       /01456801/ [Concomitant]
     Dosage: 160 MG, UNK
  9. METHOTREXATE [Concomitant]
     Indication: PSORIATIC ARTHROPATHY
     Dosage: 2.5 MG, UNK
  10. METHOTREXATE [Concomitant]
     Indication: PSORIASIS
     Dosage: 15 MG, QWK
     Route: 048
  11. FOLIC ACID [Concomitant]
     Dosage: UNK
  12. ALLEGRA [Concomitant]
     Indication: HYPERSENSITIVITY
     Dosage: 180 MG, QD
     Route: 048
  13. PREDNISONE [Concomitant]
     Dosage: 5 MG, QD
     Route: 048

REACTIONS (3)
  - Musculoskeletal pain [Recovered/Resolved]
  - Pain in extremity [Recovered/Resolved]
  - Paraesthesia [Not Recovered/Not Resolved]
